FAERS Safety Report 9240030 (Version 1)
Quarter: 2013Q2

REPORT INFORMATION
  Report Type: Spontaneous
  Country: US (occurrence: None)
  Receive Date: 20130418
  Receipt Date: 20130418
  Transmission Date: 20140414
  Serious: Yes (Death)
  Sender: FDA-Public Use
  Company Number: None

PATIENT
  Age: 81 Year
  Sex: Female
  Weight: 70 kg

DRUGS (2)
  1. METHOTREXATE [Suspect]
     Indication: ULCERATIVE KERATITIS
     Route: 048
     Dates: start: 20120101, end: 20121105
  2. PREDNISONE [Suspect]
     Route: 048

REACTIONS (3)
  - Pneumonia [None]
  - Pneumocystis jirovecii pneumonia [None]
  - Traumatic lung injury [None]
